FAERS Safety Report 6144437-1 (Version None)
Quarter: 2009Q2

REPORT INFORMATION
  Report Type: 
  Country: None (occurrence: None)
  Receive Date: 20090406
  Receipt Date: 20090323
  Transmission Date: 20091009
  Serious: Yes (Hospitalization)
  Sender: FDA-Public Use
  Company Number: GB-ROCHE-623179

PATIENT
  Age: 9 Year
  Sex: Male

DRUGS (12)
  1. MYCOPHENOLATE MOFETIL [Interacting]
     Route: 065
  2. PREDNISOLONE [Interacting]
     Route: 065
  3. RAPAMUNE [Interacting]
     Route: 065
  4. EFAVIRENZ [Suspect]
     Indication: DRUG USE FOR UNKNOWN INDICATION
     Route: 065
  5. EFAVIRENZ [Suspect]
     Route: 065
  6. EFAVIRENZ [Suspect]
     Route: 065
  7. ZIDOVUDINE [Suspect]
     Indication: DRUG USE FOR UNKNOWN INDICATION
     Route: 065
  8. ZIDOVUDINE [Suspect]
     Route: 065
  9. LAMIVUDINE [Suspect]
     Indication: DRUG USE FOR UNKNOWN INDICATION
     Route: 065
  10. LAMIVUDINE [Suspect]
     Route: 065
  11. RALTEGRAVIR [Concomitant]
  12. KIVEXA [Concomitant]

REACTIONS (9)
  - CACHEXIA [None]
  - CHOLESTASIS [None]
  - DRUG INEFFECTIVE [None]
  - DRUG INTERACTION [None]
  - HYPERLIPIDAEMIA [None]
  - HYPERTENSION [None]
  - MYOPATHY [None]
  - RENAL IMPAIRMENT [None]
  - TRANSPLANT REJECTION [None]
